FAERS Safety Report 8256766-6 (Version None)
Quarter: 2012Q2

REPORT INFORMATION
  Report Type: 
  Country: None (occurrence: None)
  Receive Date: 20120403
  Receipt Date: 20120322
  Transmission Date: 20120825
  Serious: Yes (Hospitalization, Other)
  Sender: FDA-Public Use
  Company Number: JP-BRISTOL-MYERS SQUIBB COMPANY-16297954

PATIENT
  Age: 30 Year
  Sex: Female
  Weight: 48 kg

DRUGS (6)
  1. LAMICTAL [Suspect]
     Dosage: TABS
     Route: 048
     Dates: start: 20110501, end: 20111219
  2. CEFAZOLIN SODIUM [Concomitant]
     Dosage: TAB
  3. LITHIUM CARBONATE [Concomitant]
     Dosage: TABS
  4. PREDNISOLONE [Concomitant]
     Dosage: TAB
     Dates: start: 20110909, end: 20120318
  5. ABILIFY [Suspect]
     Indication: BIPOLAR I DISORDER
     Route: 048
     Dates: end: 20111219
  6. ALPRAZOLAM [Concomitant]
     Dosage: TABS

REACTIONS (2)
  - PNEUMONIA [None]
  - HYPOGAMMAGLOBULINAEMIA [None]
